FAERS Safety Report 5187680-0 (Version None)
Quarter: 2006Q4

REPORT INFORMATION
  Report Type: 
  Country: None (occurrence: None)
  Receive Date: 20061214
  Receipt Date: 20061207
  Transmission Date: 20070319
  Serious: Yes (Death)
  Sender: FDA-Public Use
  Company Number: 2006SP008066

PATIENT
  Sex: 0

DRUGS (1)
  1. TEMOZOLOMIDE (S-P)  (TEMOZOLOMIDE) [Suspect]
     Indication: ANAPLASTIC ASTROCYTOMA

REACTIONS (1)
  - DEATH [None]
